FAERS Safety Report 12469424 (Version 2)
Quarter: 2016Q4

REPORT INFORMATION
  Report Type: Spontaneous
  Country: US (occurrence: US)
  Receive Date: 20160615
  Receipt Date: 20161116
  Transmission Date: 20170207
  Serious: No
  Sender: FDA-Public Use
  Company Number: US-BIOMARINAP-US-2016-110098

PATIENT
  Sex: Female
  Weight: 78.6 kg

DRUGS (1)
  1. KUVAN [Suspect]
     Active Substance: SAPROPTERIN DIHYDROCHLORIDE
     Indication: PHENYLKETONURIA
     Dosage: 1500 MG, QD
     Route: 048
     Dates: start: 20160422

REACTIONS (1)
  - Drug ineffective [Unknown]
